FAERS Safety Report 15306660 (Version 9)
Quarter: 2020Q1

REPORT INFORMATION
  Report Type: Spontaneous
  Country: US (occurrence: US)
  Receive Date: 20180822
  Receipt Date: 20200324
  Transmission Date: 20200409
  Serious: Yes (Hospitalization, Other)
  Sender: FDA-Public Use
  Company Number: US-GLAXOSMITHKLINE-US2018GSK151235

PATIENT
  Sex: Female

DRUGS (5)
  1. PREVACID [Suspect]
     Active Substance: LANSOPRAZOLE
     Indication: GASTROOESOPHAGEAL REFLUX DISEASE
     Dosage: UNK
     Route: 065
  2. ESOMEPRAZOLE. [Suspect]
     Active Substance: ESOMEPRAZOLE MAGNESIUM
     Indication: GASTROOESOPHAGEAL REFLUX DISEASE
     Dosage: 40 MG, QD
     Route: 065
     Dates: start: 20150814, end: 20160215
  3. OMEPRAZOLE. [Suspect]
     Active Substance: OMEPRAZOLE
     Indication: GASTROOESOPHAGEAL REFLUX DISEASE
     Dosage: 20 MG, QD
     Route: 065
     Dates: start: 2016
  4. PANTOPRAZOLE [Suspect]
     Active Substance: PANTOPRAZOLE
     Indication: PRODUCT USED FOR UNKNOWN INDICATION
     Dosage: 40 MG, QAM
     Route: 048
  5. ESOMEPRAZOLE. [Suspect]
     Active Substance: ESOMEPRAZOLE MAGNESIUM
     Indication: PRODUCT USED FOR UNKNOWN INDICATION
     Dosage: 40 MG, QD
     Route: 048
     Dates: start: 20150417

REACTIONS (27)
  - Acute kidney injury [Unknown]
  - Diabetic nephropathy [Unknown]
  - Nephropathy [Unknown]
  - Glomerulosclerosis [Unknown]
  - Nephrosclerosis [Unknown]
  - Renal atrophy [Unknown]
  - Renal impairment [Unknown]
  - Hypertensive nephropathy [Unknown]
  - Renal failure [Unknown]
  - Renal hypertension [Unknown]
  - Ureteral disorder [Unknown]
  - Nephrogenic anaemia [Unknown]
  - Pyelocaliectasis [Unknown]
  - Focal segmental glomerulosclerosis [Unknown]
  - Oliguria [Unknown]
  - Acute myocardial infarction [Unknown]
  - Cardiac failure congestive [Unknown]
  - Diabetic end stage renal disease [Unknown]
  - Tubulointerstitial nephritis [Unknown]
  - Dialysis [Unknown]
  - Proteinuria [Unknown]
  - Chronic kidney disease [Unknown]
  - Haemodialysis [Unknown]
  - Azotaemia [Unknown]
  - Renal cyst [Unknown]
  - End stage renal disease [Unknown]
  - Peritoneal dialysis [Unknown]
